FAERS Safety Report 9543285 (Version 2)
Quarter: 2013Q4

REPORT INFORMATION
  Report Type: Spontaneous
  Country: US (occurrence: US)
  Receive Date: 20130923
  Receipt Date: 20131126
  Transmission Date: 20140711
  Serious: Yes (Other)
  Sender: FDA-Public Use
  Company Number: US-PFIZER INC-2013271556

PATIENT
  Age: 60 Year
  Sex: Male
  Weight: 127 kg

DRUGS (9)
  1. XELJANZ [Suspect]
     Indication: RHEUMATOID ARTHRITIS
     Dosage: 5 MG, 2X/DAY
     Route: 048
     Dates: start: 20130828, end: 20130918
  2. METHOTREXATE [Concomitant]
     Dosage: 5 MG, UNK
     Route: 048
  3. METHOTREXATE [Concomitant]
     Dosage: 25 MG, UNK
  4. CELEBREX [Concomitant]
     Dosage: UNK
  5. FOLIC ACID [Concomitant]
     Dosage: UNK
  6. VITAMIN D [Concomitant]
     Dosage: UNK
  7. PREDNISONE [Concomitant]
     Dosage: 5 MG, UNK
  8. HYDROCODONE [Concomitant]
     Dosage: UNK
  9. HYDROXYCHLOROQUINE [Concomitant]
     Dosage: UNK, DAILY

REACTIONS (8)
  - Abasia [Recovering/Resolving]
  - Tremor [Recovering/Resolving]
  - Asthenia [Recovering/Resolving]
  - Nasopharyngitis [Recovering/Resolving]
  - Abdominal discomfort [Recovering/Resolving]
  - Gastrointestinal pain [Unknown]
  - Diarrhoea [Unknown]
  - Drug ineffective [Unknown]
